FAERS Safety Report 6453352-5 (Version None)
Quarter: 2009Q4

REPORT INFORMATION
  Report Type: 
  Country: None (occurrence: None)
  Receive Date: 20091117
  Receipt Date: 20091105
  Transmission Date: 20100525
  Serious: Yes (Other)
  Sender: FDA-Public Use
  Company Number: 230213J09BRA

PATIENT
  Age: 22 Year
  Sex: Male

DRUGS (5)
  1. REBIF [Suspect]
     Indication: RELAPSING-REMITTING MULTIPLE SCLEROSIS
     Dosage: 44 MCG, 3 IN 1 WEEKS
     Dates: start: 20090818
  2. ALL OTHER THERAPEUTIC PRODUCTS [Suspect]
     Dosage: 1 IN 1 DAYS
     Dates: start: 20090817
  3. FORASEQ [Concomitant]
  4. FENOTEROL HYDROBROMIDE [Concomitant]
  5. IPRATROPIUM BROMIDE [Concomitant]

REACTIONS (1)
  - ASTHMATIC CRISIS [None]
